FAERS Safety Report 5006944-4 (Version None)
Quarter: 2006Q2

REPORT INFORMATION
  Report Type: 
  Country: None (occurrence: None)
  Receive Date: 20060517
  Receipt Date: 20060512
  Transmission Date: 20061013
  Serious: Yes (Hospitalization)
  Sender: FDA-Public Use
  Company Number: 200611950GDS

PATIENT
  Age: 76 Year
  Sex: Male

DRUGS (6)
  1. ASPIRIN [Suspect]
     Dosage: 100 MG, TOTAL DAILY, ORAL
     Route: 048
     Dates: end: 20051119
  2. CLOPIDOGREL [Suspect]
     Dosage: 75 MG TOTAL DAILY, ORAL
     Route: 048
     Dates: end: 20051119
  3. AMLODIPINE [Concomitant]
  4. SODIUM BICARBONATE [Concomitant]
  5. POTASSIUM CHLORIDE [Concomitant]
  6. MACROGOL 3350 [Concomitant]

REACTIONS (6)
  - ANAEMIA [None]
  - CARDIAC ARREST [None]
  - HAEMATURIA [None]
  - HYPOVOLAEMIC SHOCK [None]
  - PULMONARY OEDEMA [None]
  - RENAL FAILURE ACUTE [None]
